FAERS Safety Report 5723113-0 (Version None)
Quarter: 2008Q2

REPORT INFORMATION
  Report Type: 
  Country: None (occurrence: None)
  Receive Date: 20080430
  Receipt Date: 20080424
  Transmission Date: 20081010
  Serious: Yes (Death)
  Sender: FDA-Public Use
  Company Number: JP-JNJFOC-20080405751

PATIENT
  Sex: Male

DRUGS (3)
  1. ITRACONAZOLE [Suspect]
     Route: 041
  2. ITRACONAZOLE [Suspect]
     Indication: DRUG USE FOR UNKNOWN INDICATION
     Route: 041
  3. ITRACONAZOLE [Suspect]
     Route: 048

REACTIONS (1)
  - PNEUMONIA ASPIRATION [None]
